FAERS Safety Report 5551418-5 (Version None)
Quarter: 2007Q4

REPORT INFORMATION
  Report Type: 
  Country: None (occurrence: None)
  Receive Date: 20071212
  Receipt Date: 20071205
  Transmission Date: 20080405
  Serious: Yes (Hospitalization)
  Sender: FDA-Public Use
  Company Number: US-GENENTECH-251336

PATIENT
  Sex: Female
  Weight: 60 kg

DRUGS (4)
  1. BEVACIZUMAB [Suspect]
     Indication: GALLBLADDER CANCER
     Dosage: 10 MG/KG, Q2W
     Route: 042
     Dates: start: 20070313
  2. GEMCITABINE [Suspect]
     Indication: GALLBLADDER CANCER
     Dosage: 750 MG/M2, Q2W
     Route: 042
     Dates: start: 20070313
  3. OXALIPLATIN [Suspect]
     Indication: GALLBLADDER CANCER
     Dosage: 63.75 MG/M2, Q2W
     Route: 042
     Dates: start: 20070313
  4. LEVOFLOXACIN [Concomitant]
     Indication: DRUG USE FOR UNKNOWN INDICATION

REACTIONS (2)
  - BILIARY SEPSIS [None]
  - SYNCOPE [None]
